FAERS Safety Report 4868057-1 (Version None)
Quarter: 2005Q4

REPORT INFORMATION
  Report Type: 
  Country: None (occurrence: None)
  Receive Date: 20051229
  Receipt Date: 20051219
  Transmission Date: 20060501
  Serious: Yes (Hospitalization)
  Sender: FDA-Public Use
  Company Number: US-JNJFOC-20051204714

PATIENT
  Sex: Female

DRUGS (15)
  1. DURAGESIC-100 [Suspect]
     Dosage: ONE 100 UG/HR PATCH PLUS ONE 50 UG/HR PATCH.
     Route: 062
  2. MESANTOIN [Concomitant]
     Route: 048
  3. MESANTOIN [Concomitant]
     Indication: MYASTHENIA GRAVIS
     Route: 048
  4. VALIUM [Concomitant]
     Indication: DEPRESSION
     Route: 048
  5. ROBINUL [Concomitant]
     Route: 048
  6. ALBUTEROL [Concomitant]
     Indication: ASTHMA
     Route: 048
  7. FOLIC ACID [Concomitant]
     Route: 048
  8. VITAMIN B-12 [Concomitant]
     Route: 058
  9. DILAUDID [Concomitant]
     Route: 048
  10. THEOPHYLLINE [Concomitant]
     Indication: ASTHMA
     Route: 048
  11. SYNTHROID [Concomitant]
     Indication: HYPOTHYROIDISM
     Route: 048
  12. PAXIL [Concomitant]
     Indication: DEPRESSION
     Route: 048
  13. DIAMOX [Concomitant]
     Indication: DRUG USE FOR UNKNOWN INDICATION
     Route: 048
  14. ENABLEX [Concomitant]
     Indication: URINARY INCONTINENCE
     Route: 048
  15. TRAZODONE HCL [Concomitant]
     Indication: INSOMNIA
     Route: 048

REACTIONS (4)
  - DYSMENORRHOEA [None]
  - MENORRHAGIA [None]
  - NAUSEA [None]
  - VOMITING [None]
